FAERS Safety Report 21017475 (Version 2)
Quarter: 2022Q3

REPORT INFORMATION
  Report Type: Spontaneous
  Country: US (occurrence: US)
  Receive Date: 20220628
  Receipt Date: 20220711
  Transmission Date: 20221027
  Serious: No
  Sender: FDA-Public Use
  Company Number: US-MYLANLABS-2022M1046488

PATIENT
  Age: 58 Year
  Sex: Male
  Weight: 72.57 kg

DRUGS (1)
  1. METFORMIN HYDROCHLORIDE [Suspect]
     Active Substance: METFORMIN HYDROCHLORIDE
     Indication: Type 2 diabetes mellitus
     Dosage: UNK
     Route: 065
     Dates: start: 20220503, end: 202205

REACTIONS (4)
  - Wrong technique in product usage process [Unknown]
  - Burning sensation [Unknown]
  - Pain of skin [Unknown]
  - Product contamination physical [Unknown]

NARRATIVE: CASE EVENT DATE: 20220501
